FAERS Safety Report 10246720 (Version 2)
Quarter: 2014Q3

REPORT INFORMATION
  Report Type: Spontaneous
  Country: BR (occurrence: BR)
  Receive Date: 20140619
  Receipt Date: 20140710
  Transmission Date: 20150326
  Serious: Yes (Hospitalization, Other)
  Sender: FDA-Public Use
  Company Number: BR-PFIZER INC-2014165748

PATIENT
  Age: 77 Year
  Sex: Male
  Weight: 59.7 kg

DRUGS (5)
  1. LYRICA [Suspect]
     Active Substance: PREGABALIN
     Indication: PAIN
     Dosage: ONE TABLET (75 MG), 2X/DAY (EVERY 12 HOURS)
     Route: 048
     Dates: start: 2014
  2. TRAMAL [Suspect]
     Active Substance: TRAMADOL
     Indication: PAIN
     Dosage: 1 ^TABLET^ (150MG), 4X/DAY (EVERY 6 HOURS), AS NEEDED
     Route: 048
     Dates: start: 2014
  3. RANITIDINE [Concomitant]
     Active Substance: RANITIDINE\RANITIDINE HYDROCHLORIDE
     Dosage: UNSPECIFIED DOSE, TWICE A DAY
     Dates: start: 2012
  4. IMOSEC [Concomitant]
     Active Substance: LOPERAMIDE
     Dosage: 3 TABLETS (UNSPECIFIED DOSE), DAILY
     Dates: start: 2010
  5. FLORATIL [Concomitant]
     Dosage: 2 TABLETS OF 100MG (200 MG), DAILY
     Dates: start: 201312

REACTIONS (2)
  - Disease progression [Unknown]
  - Neoplasm malignant [Unknown]
